FAERS Safety Report 18752923 (Version 1)
Quarter: 2021Q1

REPORT INFORMATION
  Report Type: Spontaneous
  Country: US (occurrence: US)
  Receive Date: 20210118
  Receipt Date: 20210118
  Transmission Date: 20210419
  Serious: No
  Sender: FDA-Public Use
  Company Number: US-TEVA-2021-US-1868722

PATIENT
  Age: 66 Year
  Sex: Male

DRUGS (1)
  1. MEXILETINE [Suspect]
     Active Substance: MEXILETINE
     Route: 065

REACTIONS (1)
  - Gastrooesophageal reflux disease [Unknown]
